FAERS Safety Report 6535726-7 (Version None)
Quarter: 2010Q1

REPORT INFORMATION
  Report Type: 
  Country: None (occurrence: None)
  Receive Date: 20100113
  Receipt Date: 20100104
  Transmission Date: 20100710
  Serious: Yes (Death)
  Sender: FDA-Public Use
  Company Number: US-BAYER-201010810GPV

PATIENT
  Age: 28 Year
  Sex: Male

DRUGS (4)
  1. ACETAMINOPHEN/DIPHENHYDRAMINE [Suspect]
     Indication: COMPLETED SUICIDE
  2. IBUPROFEN [Suspect]
     Indication: COMPLETED SUICIDE
  3. SALICYLATE [Suspect]
     Indication: COMPLETED SUICIDE
  4. CLOMIPRAMINE [Suspect]
     Indication: COMPLETED SUICIDE

REACTIONS (1)
  - DRUG TOXICITY [None]
